FAERS Safety Report 16314818 (Version 1)
Quarter: 2019Q2

REPORT INFORMATION
  Report Type: Spontaneous
  Country: US (occurrence: US)
  Receive Date: 20190409
  Receipt Date: 20190409
  Transmission Date: 20190711
  Serious: Yes (Hospitalization)
  Sender: FDA-Public Use
  Company Number: None

PATIENT
  Age: 7 Year
  Sex: Male

DRUGS (11)
  1. ALBUTEROL. [Concomitant]
     Active Substance: ALBUTEROL
  2. SENNA [Concomitant]
     Active Substance: SENNA LEAF\SENNOSIDES\SENNOSIDES A AND B
  3. PROMETHAZINE [Concomitant]
     Active Substance: PROMETHAZINE\PROMETHAZINE HYDROCHLORIDE
  4. DISYOLOMINE [Concomitant]
  5. GENOTROPIN [Suspect]
     Active Substance: SOMATROPIN
     Indication: HYPOPITUITARISM
     Dosage: ?          OTHER DOSE:0.2MG;?
     Route: 058
     Dates: start: 20140730
  6. FAMOTADINE [Concomitant]
  7. PREVACID [Concomitant]
     Active Substance: LANSOPRAZOLE
  8. GENOTROPIN [Suspect]
     Active Substance: SOMATROPIN
     Indication: HYPOPITUITARISM
     Dosage: ?          OTHER DOSE:0.4MG;?
     Route: 058
     Dates: start: 20140730
  9. AMOXICILLIN. [Concomitant]
     Active Substance: AMOXICILLIN
  10. THYROXINE [Concomitant]
     Active Substance: LEVOTHYROXINE
  11. ??? [Concomitant]

REACTIONS (1)
  - Ear infection [None]

NARRATIVE: CASE EVENT DATE: 20190408
